FAERS Safety Report 5551679-2 (Version None)
Quarter: 2007Q4

REPORT INFORMATION
  Report Type: 
  Country: None (occurrence: None)
  Receive Date: 20071129
  Receipt Date: 20070411
  Transmission Date: 20080405
  Serious: Yes (Hospitalization, Other)
  Sender: FDA-Public Use
  Company Number: US200607004118

PATIENT
  Age: 55 Year
  Sex: Female
  Weight: 84.4 kg

DRUGS (1)
  1. ZYPREXA [Suspect]
     Dates: start: 20040205

REACTIONS (9)
  - BLOOD CHOLESTEROL INCREASED [None]
  - BLOOD GLUCOSE INCREASED [None]
  - HAEMATEMESIS [None]
  - MALAISE [None]
  - METABOLIC DISORDER [None]
  - OVERWEIGHT [None]
  - TYPE 1 DIABETES MELLITUS [None]
  - VISION BLURRED [None]
  - VOMITING [None]
